APPROVED DRUG PRODUCT: UVADEX
Active Ingredient: METHOXSALEN
Strength: 0.02MG/ML
Dosage Form/Route: INJECTABLE;INJECTION
Application: N020969 | Product #001
Applicant: THERAKOS DEVELOPMENT LTD
Approved: Feb 25, 1999 | RLD: Yes | RS: Yes | Type: RX